FAERS Safety Report 10585863 (Version 2)
Quarter: 2014Q4

REPORT INFORMATION
  Report Type: Spontaneous
  Country: US (occurrence: None)
  Receive Date: 20141112
  Receipt Date: 20141128
  Transmission Date: 20150529
  Serious: Yes (Other)
  Sender: FDA-Public Use
  Company Number: US-001298N

PATIENT
  Age: 61 Year
  Sex: Male

DRUGS (7)
  1. CIMZIA [Concomitant]
     Active Substance: CERTOLIZUMAB PEGOL
  2. PREDNISONE. [Concomitant]
     Active Substance: PREDNISONE
  3. SOLUTIONS FOR PARENTERAL NUTRITION [Concomitant]
     Active Substance: AMINO ACIDS\DEXTROSE\ELECTROLYTES NOS
  4. OMEPRAZOLE. [Concomitant]
     Active Substance: OMEPRAZOLE
  5. COLCHICINE. [Concomitant]
     Active Substance: COLCHICINE
  6. GATTEX [Suspect]
     Active Substance: TEDUGLUTIDE\WATER
     Indication: SHORT-BOWEL SYNDROME
     Dosage: DF
     Route: 058
     Dates: start: 20130611, end: 20140912
  7. TOPROL XL [Concomitant]
     Active Substance: METOPROLOL SUCCINATE

REACTIONS (13)
  - Incontinence [None]
  - Vision blurred [None]
  - Drug dose omission [None]
  - Eye irritation [None]
  - Eye discharge [None]
  - Diarrhoea [None]
  - Vasculitis [None]
  - Gout [None]
  - Nasal congestion [None]
  - Dry eye [None]
  - Lacrimation increased [None]
  - Rhinorrhoea [None]
  - No therapeutic response [None]

NARRATIVE: CASE EVENT DATE: 201409
